FAERS Safety Report 4892909-X (Version None)
Quarter: 2006Q1

REPORT INFORMATION
  Report Type: 
  Country: None (occurrence: None)
  Receive Date: 20060126
  Receipt Date: 20050930
  Transmission Date: 20060701
  Serious: Yes (Hospitalization, Disabling, Other)
  Sender: FDA-Public Use
  Company Number: US-MERCK-0510USA02153

PATIENT
  Age: 38 Year
  Sex: Male
  Weight: 89 kg

DRUGS (7)
  1. VIOXX [Suspect]
     Route: 048
     Dates: start: 19990101, end: 20010101
  2. FOSAMAX [Concomitant]
     Route: 065
  3. SYNTHROID [Concomitant]
     Route: 065
  4. DEMADEX [Concomitant]
     Route: 065
  5. DETROL [Concomitant]
     Route: 065
  6. VITAMIN E [Concomitant]
     Route: 065
  7. CALCIUM (UNSPECIFIED) [Concomitant]
     Route: 065

REACTIONS (11)
  - ANGINA UNSTABLE [None]
  - BACK INJURY [None]
  - BACK PAIN [None]
  - DYSPNOEA EXERTIONAL [None]
  - GENERALISED OEDEMA [None]
  - HAEMORRHOIDS [None]
  - INTERVERTEBRAL DISC DEGENERATION [None]
  - MYOCARDIAL INFARCTION [None]
  - POLYP [None]
  - RADICULITIS [None]
  - RADICULITIS LUMBOSACRAL [None]
